FAERS Safety Report 25048572 (Version 2)
Quarter: 2025Q1

REPORT INFORMATION
  Report Type: Spontaneous
  Country: US (occurrence: US)
  Receive Date: 20250307
  Receipt Date: 20250321
  Transmission Date: 20250409
  Serious: No
  Sender: VIIV
  Company Number: US-VIIV HEALTHCARE- US2025025463

PATIENT
  Sex: Female
  Weight: 55.79 kg

DRUGS (1)
  1. JULUCA [Suspect]
     Active Substance: DOLUTEGRAVIR SODIUM\RILPIVIRINE HYDROCHLORIDE
     Indication: HIV carrier
     Route: 048

REACTIONS (2)
  - Depression [Unknown]
  - Product dose omission issue [Unknown]
